FAERS Safety Report 17655634 (Version 1)
Quarter: 2020Q2

REPORT INFORMATION
  Report Type: Spontaneous
  Country: US (occurrence: US)
  Receive Date: 20200410
  Receipt Date: 20200410
  Transmission Date: 20200713
  Serious: No
  Sender: FDA-Public Use
  Company Number: US-SUNOVION-2020SUN001127

PATIENT

DRUGS (1)
  1. LATUDA [Suspect]
     Active Substance: LURASIDONE HYDROCHLORIDE
     Indication: BIPOLAR DISORDER
     Dosage: 20 MG, HS
     Route: 048

REACTIONS (13)
  - Fatigue [Not Recovered/Not Resolved]
  - Dyskinesia [Not Recovered/Not Resolved]
  - Diplopia [Unknown]
  - Palpitations [Unknown]
  - Nausea [Not Recovered/Not Resolved]
  - Paraesthesia [Not Recovered/Not Resolved]
  - Confusional state [Not Recovered/Not Resolved]
  - Feeling abnormal [Not Recovered/Not Resolved]
  - Time perception altered [Not Recovered/Not Resolved]
  - Dizziness [Not Recovered/Not Resolved]
  - Therapy cessation [Unknown]
  - Chest pain [Not Recovered/Not Resolved]
  - Abdominal discomfort [Not Recovered/Not Resolved]

NARRATIVE: CASE EVENT DATE: 20200404
